FAERS Safety Report 4976872-9 (Version None)
Quarter: 2006Q2

REPORT INFORMATION
  Report Type: 
  Country: None (occurrence: None)
  Receive Date: 20060413
  Receipt Date: 20060331
  Transmission Date: 20061013
  Serious: Yes (Other)
  Sender: FDA-Public Use
  Company Number: 2006045627

PATIENT
  Age: 61 Year
  Sex: Male
  Weight: 85.7298 kg

DRUGS (6)
  1. VIAGRA [Suspect]
     Indication: ERECTILE DYSFUNCTION
     Dosage: 50 MG
     Dates: start: 19980101
  2. LEVITRA [Suspect]
     Indication: ILL-DEFINED DISORDER
     Dosage: 50 MG
     Dates: start: 20060101, end: 20060101
  3. ALL OTHER NON-THERAPEUTIC PRODUCTS (ALL OTHER NON-THERAPEUTIC PRODUCTS [Suspect]
     Indication: ILL-DEFINED DISORDER
  4. THEOPHYLLINE [Concomitant]
  5. FORADIL [Concomitant]
  6. ACETYLSALICYLIC ACID SRT [Concomitant]

REACTIONS (5)
  - DIABETES MELLITUS NON-INSULIN-DEPENDENT [None]
  - DRUG EFFECT DECREASED [None]
  - DYSPNOEA [None]
  - PULMONARY CONGESTION [None]
  - WRONG TECHNIQUE IN DRUG USAGE PROCESS [None]
